FAERS Safety Report 5301066-7 (Version None)
Quarter: 2007Q2

REPORT INFORMATION
  Report Type: 
  Country: None (occurrence: None)
  Receive Date: 20070418
  Receipt Date: 20070405
  Transmission Date: 20071010
  Serious: Yes (Hospitalization)
  Sender: FDA-Public Use
  Company Number: FR-ELI_LILLY_AND_COMPANY-FR200704001889

PATIENT
  Age: 76 Year
  Sex: Female

DRUGS (10)
  1. FORTEO [Suspect]
     Indication: OSTEOPOROSIS
     Dosage: 20 UG, DAILY (1/D)
     Route: 058
     Dates: start: 20061215
  2. TRIATEC [Concomitant]
  3. MEDROL [Concomitant]
  4. PREVISCAN [Concomitant]
     Dosage: 0.25 D/F, EACH EVENING
  5. SPECIAFOLDINE [Concomitant]
  6. MONICOR [Concomitant]
  7. NOVATREX [Concomitant]
  8. INIPOMP [Concomitant]
  9. TEMESTA [Concomitant]
  10. DI-ANTALVIC [Concomitant]

REACTIONS (2)
  - GASTROENTERITIS [None]
  - HAEMATOMA [None]
